FAERS Safety Report 12461421 (Version 3)
Quarter: 2016Q3

REPORT INFORMATION
  Report Type: Spontaneous
  Country: US (occurrence: US)
  Receive Date: 20160613
  Receipt Date: 20160708
  Transmission Date: 20161109
  Serious: Yes (Other)
  Sender: FDA-Public Use
  Company Number: US-BAYER-2016-114711

PATIENT
  Age: 30 Year
  Sex: Female

DRUGS (1)
  1. SKYLA [Suspect]
     Active Substance: LEVONORGESTREL
     Indication: CONTRACEPTION
     Dosage: 14 MCG/24HR, CONT
     Route: 015
     Dates: start: 20150730

REACTIONS (5)
  - Uterine perforation [None]
  - Device difficult to use [None]
  - Drug ineffective [Unknown]
  - Pregnancy with contraceptive device [None]
  - Device breakage [None]

NARRATIVE: CASE EVENT DATE: 201605
